FAERS Safety Report 13186168 (Version 1)
Quarter: 2017Q1

REPORT INFORMATION
  Report Type: Report from Study
  Country: None (occurrence: BR)
  Receive Date: 20170204
  Receipt Date: 20170204
  Transmission Date: 20170428
  Serious: Yes (Other)
  Sender: FDA-Public Use
  Company Number: BR-ABBVIE-17K-020-1857455-00

PATIENT
  Age: 63 Year
  Sex: Male
  Weight: 70 kg

DRUGS (6)
  1. OMEPRAZOLE. [Concomitant]
     Active Substance: OMEPRAZOLE
     Indication: PROPHYLAXIS
  2. OMEPRAZOLE. [Concomitant]
     Active Substance: OMEPRAZOLE
     Indication: GASTRIC DISORDER
     Route: 048
     Dates: start: 2012
  3. GLIFAGE [Concomitant]
     Active Substance: METFORMIN HYDROCHLORIDE
     Indication: DIABETES MELLITUS
     Route: 048
     Dates: start: 2013
  4. DAONIL [Concomitant]
     Active Substance: GLYBURIDE
     Indication: CEREBROVASCULAR ACCIDENT
     Dates: start: 2006
  5. AAS [Concomitant]
     Active Substance: ASPIRIN
     Indication: ANTICOAGULANT THERAPY
     Route: 048
     Dates: start: 2012
  6. HUMIRA [Suspect]
     Active Substance: ADALIMUMAB
     Indication: ANKYLOSING SPONDYLITIS
     Route: 058
     Dates: start: 20090813

REACTIONS (12)
  - Fall [Recovered/Resolved]
  - Neck pain [Not Recovered/Not Resolved]
  - Upper limb fracture [Recovered/Resolved]
  - Left ventricular end-diastolic pressure increased [Unknown]
  - Left ventricular failure [Unknown]
  - Weight decreased [Recovered/Resolved]
  - Spinal pain [Not Recovered/Not Resolved]
  - Hypertension [Recovered/Resolved]
  - Collateral circulation [Unknown]
  - Coronary artery occlusion [Unknown]
  - Joint range of motion decreased [Recovering/Resolving]
  - Myocardial infarction [Recovered/Resolved]

NARRATIVE: CASE EVENT DATE: 20110620
